FAERS Safety Report 8847628 (Version 2)
Quarter: 2013Q2

REPORT INFORMATION
  Report Type: Spontaneous
  Country: CA (occurrence: CA)
  Receive Date: 20121018
  Receipt Date: 20130422
  Transmission Date: 20140414
  Serious: Yes (Other)
  Sender: FDA-Public Use
  Company Number: CA-ELI_LILLY_AND_COMPANY-CA201210001888

PATIENT
  Age: 37 Year
  Sex: Female
  Weight: 90.7 kg

DRUGS (3)
  1. CYMBALTA [Suspect]
     Indication: GENERALISED ANXIETY DISORDER
     Dosage: 1 DF, UNK
     Dates: start: 20110506, end: 20110630
  2. CYMBALTA [Suspect]
     Dosage: 90 MG, QD
     Route: 048
     Dates: start: 20110701, end: 20120525
  3. SYNTHROID [Concomitant]
     Dosage: 50 UG, QD
     Route: 048
     Dates: start: 20110309

REACTIONS (3)
  - Oral herpes [Unknown]
  - Herpes virus infection [Unknown]
  - Herpes dermatitis [Unknown]
